FAERS Safety Report 19880145 (Version 1)
Quarter: 2021Q3

REPORT INFORMATION
  Report Type: Other
  Country: DK (occurrence: DK)
  Receive Date: 20210924
  Receipt Date: 20210924
  Transmission Date: 20211014
  Serious: Yes (Other)
  Sender: FDA-Public Use
  Company Number: DK-ROCHE-2913565

PATIENT

DRUGS (1)
  1. VEMURAFENIB. [Suspect]
     Active Substance: VEMURAFENIB
     Indication: METASTATIC MALIGNANT MELANOMA
     Route: 065

REACTIONS (9)
  - Rash [Unknown]
  - Arthralgia [Unknown]
  - Lymphopenia [Unknown]
  - Pyrexia [Unknown]
  - Uveitis [Unknown]
  - Candida infection [Unknown]
  - Neutropenia [Unknown]
  - Pancreatitis [Unknown]
  - Colitis [Unknown]
